FAERS Safety Report 5386310-2 (Version None)
Quarter: 2007Q3

REPORT INFORMATION
  Report Type: 
  Country: None (occurrence: None)
  Receive Date: 20070713
  Receipt Date: 20070706
  Transmission Date: 20080115
  Serious: Yes (Hospitalization, Other)
  Sender: FDA-Public Use
  Company Number: HQWYE688319JUN07

PATIENT
  Age: 25 Year
  Sex: Female

DRUGS (6)
  1. OROKEN [Suspect]
     Indication: URINARY TRACT INFECTION
     Dosage: UNKNOWN
     Route: 048
     Dates: start: 20050906, end: 20050915
  2. AMOXICILLIN [Suspect]
     Indication: URINARY TRACT INFECTION
     Dosage: UNKNOWN
     Route: 048
     Dates: start: 20050903, end: 20050908
  3. THIOCOLCHICOSIDE [Suspect]
     Dosage: UNKNOWN
     Route: 048
     Dates: end: 20050907
  4. PARACETAMOL [Suspect]
     Dosage: 3 G DAILY
     Route: 048
  5. TRAMADOL HCL [Suspect]
     Dosage: UNKNOWN
     Route: 048
     Dates: end: 20050907
  6. ATHYMIL [Suspect]
     Dosage: UNKNOWN
     Route: 048
     Dates: start: 20050701, end: 20050907

REACTIONS (2)
  - ABORTION SPONTANEOUS [None]
  - DRUG EXPOSURE DURING PREGNANCY [None]
